FAERS Safety Report 20045436 (Version 1)
Quarter: 2021Q4

REPORT INFORMATION
  Report Type: Spontaneous
  Country: IT (occurrence: IT)
  Receive Date: 20211108
  Receipt Date: 20211108
  Transmission Date: 20220303
  Serious: Yes (Hospitalization)
  Sender: FDA-Public Use
  Company Number: IT-PFIZER INC-202101490255

PATIENT
  Age: 69 Year
  Sex: Male

DRUGS (12)
  1. BOSULIF [Suspect]
     Active Substance: BOSUTINIB MONOHYDRATE
     Indication: Chronic myeloid leukaemia
     Dosage: 200 MG
  2. ASPIRIN [Concomitant]
     Active Substance: ASPIRIN
     Dosage: UNK
  3. SIMVASTATIN [Concomitant]
     Active Substance: SIMVASTATIN
     Dosage: UNK
  4. METFORMIN [Concomitant]
     Active Substance: METFORMIN HYDROCHLORIDE
     Dosage: UNK
  5. NORVASC [Concomitant]
     Active Substance: AMLODIPINE BESYLATE
     Dosage: UNK
  6. RISPERDAL [Concomitant]
     Active Substance: RISPERIDONE
     Dosage: UNK
  7. FLURAZEPAM HYDROCHLORIDE [Concomitant]
     Active Substance: FLURAZEPAM HYDROCHLORIDE
     Dosage: UNK
  8. OLANZAPINE [Concomitant]
     Active Substance: OLANZAPINE
     Dosage: UNK
  9. AMITRIPTYLINE HYDROCHLORIDE [Concomitant]
     Active Substance: AMITRIPTYLINE HYDROCHLORIDE
     Dosage: UNK
  10. EN [Concomitant]
     Active Substance: DELORAZEPAM
     Dosage: UNK
  11. LASIX [Concomitant]
     Active Substance: FUROSEMIDE
     Dosage: UNK
  12. HALCION [Concomitant]
     Active Substance: TRIAZOLAM
     Dosage: UNK

REACTIONS (2)
  - Gastritis haemorrhagic [Recovered/Resolved]
  - Urinary tract infection [Recovered/Resolved]
